FAERS Safety Report 8449375-7 (Version None)
Quarter: 2012Q2

REPORT INFORMATION
  Report Type: 
  Country: None (occurrence: None)
  Receive Date: 20120619
  Receipt Date: 20081212
  Transmission Date: 20120825
  Serious: Yes (Other)
  Sender: FDA-Public Use
  Company Number: TR-ROCHE-1079610

PATIENT
  Sex: Female

DRUGS (1)
  1. OMALIZUMAB [Suspect]
     Indication: ASTHMA
     Route: 065
     Dates: start: 20081010, end: 20090501

REACTIONS (4)
  - ASTHMA [None]
  - FEELING ABNORMAL [None]
  - CHEST PAIN [None]
  - COUGH [None]
